FAERS Safety Report 14139426 (Version 2)
Quarter: 2017Q4

REPORT INFORMATION
  Report Type: Spontaneous
  Country: FR (occurrence: FR)
  Receive Date: 20171028
  Receipt Date: 20171130
  Transmission Date: 20180321
  Serious: Yes (Hospitalization, Other)
  Sender: FDA-Public Use
  Company Number: FR-MERCK KGAA-2032654

PATIENT
  Age: 73 Year
  Sex: Female

DRUGS (5)
  1. PROPRANOLOL [Concomitant]
     Active Substance: PROPRANOLOL HYDROCHLORIDE
  2. COKENZEN(BLOPRESS PLUS) [Concomitant]
  3. DITROPAN [Concomitant]
     Active Substance: OXYBUTYNIN CHLORIDE
  4. NOVOTHYROX [Suspect]
     Active Substance: LEVOTHYROXINE SODIUM
     Indication: POST PROCEDURAL HYPOTHYROIDISM
     Dates: start: 201703
  5. ELISOR [Concomitant]
     Active Substance: PRAVASTATIN SODIUM

REACTIONS (22)
  - Joint effusion [None]
  - Burning sensation [None]
  - Dental caries [None]
  - Insomnia [None]
  - Vein rupture [None]
  - Intestinal obstruction [None]
  - Fatigue [Not Recovered/Not Resolved]
  - pH urine decreased [None]
  - Dysstasia [None]
  - Palpitations [None]
  - Blood uric acid abnormal [None]
  - Drug ineffective [None]
  - Arthralgia [Recovering/Resolving]
  - Renal disorder [Not Recovered/Not Resolved]
  - Muscle spasms [None]
  - Weight increased [None]
  - Blood creatinine abnormal [None]
  - Bladder discomfort [Not Recovered/Not Resolved]
  - Heart rate increased [None]
  - Suicidal ideation [None]
  - Dizziness [None]
  - Blood pressure abnormal [None]

NARRATIVE: CASE EVENT DATE: 201705
